FAERS Safety Report 10364033 (Version 1)
Quarter: 2014Q3

REPORT INFORMATION
  Report Type: Spontaneous
  Country: CH (occurrence: CH)
  Receive Date: 20140806
  Receipt Date: 20140806
  Transmission Date: 20150326
  Serious: Yes (Hospitalization)
  Sender: FDA-Public Use
  Company Number: CH-ROCHE-1443111

PATIENT
  Age: 57 Year
  Sex: Female

DRUGS (2)
  1. ANEXATE [Suspect]
     Active Substance: FLUMAZENIL
     Indication: DRUG EFFECT DECREASED
     Route: 065
     Dates: start: 2011, end: 2011
  2. DORMICUM (INJ) [Suspect]
     Active Substance: MIDAZOLAM HYDROCHLORIDE
     Indication: SEDATION
     Route: 042
     Dates: start: 2011, end: 2011

REACTIONS (4)
  - Paradoxical drug reaction [Recovered/Resolved]
  - Dizziness [Recovered/Resolved]
  - Blood glucose increased [Unknown]
  - Drug ineffective [Unknown]

NARRATIVE: CASE EVENT DATE: 2011
